FAERS Safety Report 25288131 (Version 1)
Quarter: 2025Q2

REPORT INFORMATION
  Report Type: Spontaneous
  Country: US (occurrence: None)
  Receive Date: 20250509
  Receipt Date: 20250509
  Transmission Date: 20250716
  Serious: No
  Sender: FDA-CTU
  Company Number: None

PATIENT

DRUGS (1)
  1. MACITENTAN\TADALAFIL [Suspect]
     Active Substance: MACITENTAN\TADALAFIL

REACTIONS (5)
  - Dyspnoea [None]
  - Chest discomfort [None]
  - Fatigue [None]
  - Fluid retention [None]
  - Arterial disorder [None]
